FAERS Safety Report 23424781 (Version 1)
Quarter: 2024Q1

REPORT INFORMATION
  Report Type: Other
  Country: US (occurrence: None)
  Receive Date: 20240121
  Receipt Date: 20240121
  Transmission Date: 20240410
  Serious: Yes (Other)
  Sender: FDA-Public Use
  Company Number: US-ROCHE-3489469

PATIENT
  Age: 52 Year
  Sex: Female

DRUGS (2)
  1. OCREVUS [Suspect]
     Active Substance: OCRELIZUMAB
     Indication: Multiple sclerosis
     Dosage: INFUSE 600 MG EVERY 6 MONTHS
     Route: 042
  2. AUBAGIO [Concomitant]
     Active Substance: TERIFLUNOMIDE

REACTIONS (3)
  - Urinary tract infection [Unknown]
  - Illness [Unknown]
  - COVID-19 [Unknown]
